FAERS Safety Report 4522521-3 (Version None)
Quarter: 2004Q4

REPORT INFORMATION
  Report Type: 
  Country: None (occurrence: None)
  Receive Date: 20041207
  Receipt Date: 20041125
  Transmission Date: 20050328
  Serious: Yes (Disabling)
  Sender: FDA-Public Use
  Company Number: 2004PK01653

PATIENT
  Age: 12 Year
  Sex: Female

DRUGS (2)
  1. CARBOSTESIN ^ASTRA^ [Suspect]
     Indication: LOCAL ANAESTHESIA
     Dosage: TOTAL DOSE LESS THAN 50 MG
     Dates: start: 20040910, end: 20040910
  2. TRI [Concomitant]

REACTIONS (7)
  - HYPOAESTHESIA [None]
  - INJECTION SITE NECROSIS [None]
  - OEDEMA PERIPHERAL [None]
  - POST PROCEDURAL COMPLICATION [None]
  - SKIN GRAFT [None]
  - SKIN NECROSIS [None]
  - TENOSYNOVITIS [None]
